FAERS Safety Report 11858508 (Version 3)
Quarter: 2016Q1

REPORT INFORMATION
  Report Type: Spontaneous
  Country: FR (occurrence: FR)
  Receive Date: 20151222
  Receipt Date: 20160308
  Transmission Date: 20160526
  Serious: Yes (Life-Threatening, Hospitalization, Other)
  Sender: FDA-Public Use
  Company Number: FR-009507513-1512FRA010935

PATIENT
  Age: 77 Year
  Sex: Male
  Weight: 76 kg

DRUGS (3)
  1. JANUMET [Suspect]
     Active Substance: METFORMIN HYDROCHLORIDE\SITAGLIPTIN PHOSPHATE
     Indication: TYPE 2 DIABETES MELLITUS
     Dosage: 1 TABLET ON MORNING AND EVENING
     Route: 048
     Dates: start: 2014, end: 20151218
  2. SEROPLEX [Concomitant]
     Active Substance: ESCITALOPRAM OXALATE
     Indication: DEPRESSION
     Dosage: 10 MG, ON EVENING FOR DEPRESSION
     Route: 048
     Dates: start: 2014
  3. DOLIPRANE [Concomitant]
     Active Substance: ACETAMINOPHEN
     Indication: PAIN
     Dosage: 500 MG, 8 TIMES/DAY
     Route: 048
     Dates: start: 2014

REACTIONS (3)
  - Choking [Recovering/Resolving]
  - Oesophageal carcinoma [Unknown]
  - Dysphagia [Unknown]

NARRATIVE: CASE EVENT DATE: 2015
